FAERS Safety Report 11126771 (Version 2)
Quarter: 2015Q3

REPORT INFORMATION
  Report Type: Spontaneous
  Country: JP (occurrence: JP)
  Receive Date: 20150520
  Receipt Date: 20150714
  Transmission Date: 20151125
  Serious: Yes (Hospitalization)
  Sender: FDA-Public Use
  Company Number: JP-009507513-1505JPN008938

PATIENT
  Age: 65 Year
  Sex: Female
  Weight: 52 kg

DRUGS (14)
  1. ZETIA [Concomitant]
     Active Substance: EZETIMIBE
     Indication: PROPHYLAXIS
     Dosage: 10 MG, ONCE A DAY
     Route: 048
     Dates: end: 20150603
  2. DIART [Suspect]
     Active Substance: AZOSEMIDE
     Indication: MYOCARDITIS
     Dosage: 3 MG DAILY
     Route: 048
     Dates: end: 20140530
  3. BENET [Suspect]
     Active Substance: RISEDRONATE SODIUM
     Indication: PROPHYLAXIS
     Dosage: 17.5 MG, ONCE WEEKLY
     Route: 048
     Dates: end: 20150603
  4. TAKEPRON [Concomitant]
     Active Substance: LANSOPRAZOLE
     Indication: PROPHYLAXIS
     Dosage: 15 MG, ONCE DAILY
     Route: 048
     Dates: end: 20140618
  5. LANTUS [Concomitant]
     Active Substance: INSULIN GLARGINE
     Indication: DIABETES MELLITUS
     Dosage: 16 (DAILY DOSE UNKNOWN)
     Route: 058
     Dates: end: 20150521
  6. TENELIA [Suspect]
     Active Substance: CITALOPRAM HYDROBROMIDE
     Indication: DIABETES MELLITUS
     Dosage: 20 MG, QD, DIVIDED DOSE FREQUENCY UNKNOWN
     Route: 048
     Dates: start: 20130912, end: 201310
  7. JANUVIA [Suspect]
     Active Substance: SITAGLIPTIN PHOSPHATE
     Indication: DIABETES MELLITUS
     Dosage: 50 MG, QD, DIVIDED DOSE FREQUENCY UNKNOWN
     Route: 048
     Dates: start: 20131002, end: 20140515
  8. TENELIA [Suspect]
     Active Substance: CITALOPRAM HYDROBROMIDE
     Dosage: 20 MG, QD, DIVIDED DOSE FREQUENCY UNKNOWN
     Route: 048
     Dates: start: 20140515
  9. PREDONINE [Concomitant]
     Active Substance: PREDNISOLONE\PREDNISOLONE ACETATE\PREDNISOLONE SODIUM SUCCINATE
     Indication: CARDIOMYOPATHY
     Dosage: 10 MG, ONCE DAILY
     Route: 048
     Dates: end: 20150603
  10. COVERSYL (PERINDOPRIL ERBUMINE) [Concomitant]
     Active Substance: PERINDOPRIL
     Indication: MYOCARDITIS
     Dosage: 4 MG, TWICE A DAY
     Route: 048
     Dates: end: 20150603
  11. ALDACTONE A [Concomitant]
     Active Substance: SPIRONOLACTONE
     Indication: MYOCARDITIS
     Dosage: 25 MG, ONCE DAILY
     Route: 048
     Dates: end: 20150128
  12. ARTIST [Concomitant]
     Active Substance: CARVEDILOL
     Indication: MYOCARDITIS
     Dosage: 2.5 MG, ONCE A DAY
     Route: 048
     Dates: end: 20150603
  13. ALFAROL [Concomitant]
     Active Substance: ALFACALCIDOL
     Indication: PROPHYLAXIS
     Dosage: 1 MICROGRAM, TWICE A DAY
     Route: 048
     Dates: start: 20150519, end: 20150603
  14. NOVORAPID [Concomitant]
     Active Substance: INSULIN ASPART
     Indication: DIABETES MELLITUS
     Dosage: 14, 14,12 UNITS (THRICE A DAY)
     Route: 058
     Dates: end: 20150521

REACTIONS (1)
  - Rheumatoid arthritis [Recovering/Resolving]

NARRATIVE: CASE EVENT DATE: 201405
